FAERS Safety Report 23801038 (Version 2)
Quarter: 2024Q2

REPORT INFORMATION
  Report Type: Spontaneous
  Country: US (occurrence: US)
  Receive Date: 20240430
  Receipt Date: 20240513
  Transmission Date: 20240716
  Serious: Yes (Other)
  Sender: FDA-Public Use
  Company Number: US-OTSUKA-2024_010980

PATIENT
  Sex: Male
  Weight: 64.86 kg

DRUGS (1)
  1. ABILIFY MYCITE [Suspect]
     Active Substance: ARIPIPRAZOLE
     Indication: Product used for unknown indication
     Dosage: UNK (TOOK THE HIGHEST DOSAGE, HE WAS NOT PRESCRIBED THE MEDICATION)
     Route: 065

REACTIONS (9)
  - Hallucination, auditory [Unknown]
  - Condition aggravated [Unknown]
  - Impaired work ability [Unknown]
  - Nightmare [Unknown]
  - Paranoia [Unknown]
  - Fatigue [Unknown]
  - Prescription drug used without a prescription [Unknown]
  - Intentional product misuse [Unknown]
  - Wrong technique in product usage process [Unknown]
